FAERS Safety Report 14151273 (Version 3)
Quarter: 2017Q4

REPORT INFORMATION
  Report Type: Report from Study
  Country: US (occurrence: US)
  Receive Date: 20171102
  Receipt Date: 20171114
  Transmission Date: 20180321
  Serious: Yes (Other)
  Sender: FDA-Public Use
  Company Number: US-AMGEN-USASL2017164551

PATIENT
  Age: 49 Year
  Sex: Female

DRUGS (2)
  1. ENBREL [Suspect]
     Active Substance: ETANERCEPT
     Indication: PSORIATIC ARTHROPATHY
     Dosage: 50 MG, QWK
     Route: 065
     Dates: start: 2005
  2. HYDROCODONE/ACETAMINOPHEN [Concomitant]
     Active Substance: ACETAMINOPHEN\HYDROCODONE
     Indication: PAIN
     Dosage: 7.5-325 MG ONE TAB UPTO THREE TIMES A DAY

REACTIONS (9)
  - Livedo reticularis [Unknown]
  - Hypertension [Unknown]
  - Drug effect incomplete [Unknown]
  - Product storage error [Unknown]
  - Cerebrovascular accident [Unknown]
  - Peripheral coldness [Unknown]
  - Inappropriate schedule of drug administration [Unknown]
  - Coordination abnormal [Unknown]
  - Oedema peripheral [Unknown]

NARRATIVE: CASE EVENT DATE: 201709
